FAERS Safety Report 9103919 (Version 4)
Quarter: 2013Q2

REPORT INFORMATION
  Report Type: Spontaneous
  Country: US (occurrence: US)
  Receive Date: 20130219
  Receipt Date: 20130416
  Transmission Date: 20140414
  Serious: Yes (Other)
  Sender: FDA-Public Use
  Company Number: US-AMGEN-USASP2013010080

PATIENT
  Age: 78 Year
  Sex: Male
  Weight: 63.95 kg

DRUGS (8)
  1. NPLATE [Suspect]
     Indication: IDIOPATHIC THROMBOCYTOPENIC PURPURA
     Dosage: 9 MUG/KG, QWK
     Route: 058
     Dates: start: 20130123
  2. NPLATE [Suspect]
     Dosage: 10 MUG/KG, QWK
     Route: 058
     Dates: start: 20130125
  3. NPLATE [Suspect]
     Dosage: 10 MUG/KG, TWICE EVERY WEEK
     Route: 058
     Dates: start: 20130322
  4. ALLOPURINOL [Concomitant]
     Dosage: 100 MG, QD
     Route: 048
  5. METOPROLOL [Concomitant]
     Dosage: 50 MG, BID
     Route: 048
  6. DOK PLUS [Concomitant]
     Dosage: 100 MG, BID
     Route: 048
  7. AMLODIPINE [Concomitant]
     Dosage: 10 MG, QD
     Route: 048
  8. FERROUS SULPHATE                   /00023503/ [Concomitant]
     Dosage: 320 MG, QD

REACTIONS (3)
  - Therapeutic response decreased [Unknown]
  - Platelet count abnormal [Unknown]
  - Hepatitis [Unknown]
